FAERS Safety Report 12944208 (Version 3)
Quarter: 2016Q4

REPORT INFORMATION
  Report Type: Report from Study
  Country: FR (occurrence: FR)
  Receive Date: 20161115
  Receipt Date: 20161209
  Transmission Date: 20170207
  Serious: Yes (Other)
  Sender: FDA-Public Use
  Company Number: FR-VIFOR (INTERNATIONAL) INC.-VIT-2016-07125

PATIENT
  Age: 49 Year
  Sex: Male
  Weight: 95 kg

DRUGS (4)
  1. CALCIDIA [Concomitant]
     Active Substance: CALCIUM POLYCARBOPHIL
     Indication: CHRONIC KIDNEY DISEASE
     Dates: start: 20160116, end: 20160617
  2. VENOFER [Concomitant]
     Active Substance: IRON SUCROSE
     Indication: CHRONIC KIDNEY DISEASE
     Dates: start: 20160309, end: 20160810
  3. ZYMAD [Concomitant]
     Active Substance: CHOLECALCIFEROL
     Indication: CHRONIC KIDNEY DISEASE
     Dates: start: 20121019
  4. VELPHORO [Suspect]
     Active Substance: FERRIC OXYHYDROXIDE
     Indication: BLOOD PHOSPHORUS ABNORMAL
     Route: 048
     Dates: start: 20160728

REACTIONS (3)
  - Gastrointestinal haemorrhage [Unknown]
  - Breath odour [Not Recovered/Not Resolved]
  - Diarrhoea [Not Recovered/Not Resolved]

NARRATIVE: CASE EVENT DATE: 2016
